FAERS Safety Report 25189884 (Version 1)
Quarter: 2025Q2

REPORT INFORMATION
  Report Type: Spontaneous
  Country: GB (occurrence: GB)
  Receive Date: 20250411
  Receipt Date: 20250411
  Transmission Date: 20250716
  Serious: Yes (Hospitalization)
  Sender: MYLAN
  Company Number: GB-MYLANLABS-2025M1029038

PATIENT
  Sex: Male

DRUGS (1)
  1. TOBI [Suspect]
     Active Substance: TOBRAMYCIN
     Indication: Cystic fibrosis
     Dosage: 1 DOSAGE FORM, BID (300 MG/5ML, TWICE A DAY NOT LESS THAN 6 HOURS BETWEEN DOSES AS DIRECTED)

REACTIONS (2)
  - Lower respiratory tract infection [Unknown]
  - Off label use [Unknown]
